FAERS Safety Report 20746485 (Version 2)
Quarter: 2023Q2

REPORT INFORMATION
  Report Type: Spontaneous
  Country: US (occurrence: US)
  Receive Date: 20220425
  Receipt Date: 20230511
  Transmission Date: 20230722
  Serious: No
  Sender: FDA-Public Use
  Company Number: US-PFIZER INC-202200197504

PATIENT
  Age: 62 Year
  Sex: Female

DRUGS (20)
  1. INLYTA [Suspect]
     Active Substance: AXITINIB
     Indication: Renal cell carcinoma
     Dosage: 7 MG, 2X/DAY
     Dates: start: 20210504, end: 202107
  2. INLYTA [Suspect]
     Active Substance: AXITINIB
     Dosage: 2 MG, 2X/DAY
     Dates: start: 2021
  3. INLYTA [Suspect]
     Active Substance: AXITINIB
     Dosage: EVERY 12 HOURS
     Route: 048
     Dates: start: 2021
  4. INLYTA [Suspect]
     Active Substance: AXITINIB
     Dosage: EVERY 12 HOURS
     Route: 048
     Dates: start: 20211209
  5. KEYTRUDA [Suspect]
     Active Substance: PEMBROLIZUMAB
     Indication: Renal cell carcinoma
     Dosage: UNK
  6. JANUMET [Concomitant]
     Active Substance: METFORMIN HYDROCHLORIDE\SITAGLIPTIN PHOSPHATE
     Dosage: UNK
  7. FLUTICASONE FUROATE\SALMETEROL XINAFOATE [Concomitant]
     Active Substance: FLUTICASONE FUROATE\SALMETEROL XINAFOATE
     Dosage: UNK
  8. SUCRALFATE [Concomitant]
     Active Substance: SUCRALFATE
     Dosage: UNK
  9. ATORVASTATIN [Concomitant]
     Active Substance: ATORVASTATIN
     Dosage: UNK
  10. TRIAMCINOLONE [Concomitant]
     Active Substance: TRIAMCINOLONE
     Dosage: UNK
  11. CLOBETASOL [Concomitant]
     Active Substance: CLOBETASOL
     Dosage: UNK
  12. LEVEMIR [Concomitant]
     Active Substance: INSULIN DETEMIR
     Dosage: UNK
  13. VENTOLIN [Concomitant]
     Active Substance: ALBUTEROL SULFATE
     Dosage: UNK
  14. LEVOTHYROXINE [Concomitant]
     Active Substance: LEVOTHYROXINE
     Dosage: UNK
  15. LIDOCAINE [Concomitant]
     Active Substance: LIDOCAINE
     Dosage: UNK
  16. FLUOCINOLONE [Concomitant]
     Active Substance: FLUOCINOLONE
     Dosage: UNK
  17. LISINOPRIL [Concomitant]
     Active Substance: LISINOPRIL
     Dosage: UNK
  18. MONTELUKAST [Concomitant]
     Active Substance: MONTELUKAST SODIUM
     Dosage: UNK
  19. HYDROCORTISONE [Concomitant]
     Active Substance: HYDROCORTISONE
     Dosage: UNK
  20. GLIMEPIRIDE [Concomitant]
     Active Substance: GLIMEPIRIDE
     Dosage: UNK

REACTIONS (8)
  - Hyperkeratosis [Unknown]
  - Skin exfoliation [Unknown]
  - Pain in extremity [Recovered/Resolved]
  - Diarrhoea [Not Recovered/Not Resolved]
  - Pain [Unknown]
  - Nausea [Recovered/Resolved]
  - Catheter site infection [Recovered/Resolved]
  - Drug hypersensitivity [Recovered/Resolved]

NARRATIVE: CASE EVENT DATE: 20210101
